FAERS Safety Report 7214307-6 (Version None)
Quarter: 2010Q4

REPORT INFORMATION
  Report Type: 
  Country: None (occurrence: None)
  Receive Date: 20101230
  Receipt Date: 20101220
  Transmission Date: 20110411
  Serious: Yes (Other)
  Sender: FDA-Public Use
  Company Number: 2010SP032774

PATIENT
  Age: 30 Year
  Sex: Female
  Weight: 48 kg

DRUGS (5)
  1. OILEZZ (DESOGESTROL/ETHINYLESTRADIOL/00570801/) [Suspect]
     Indication: CONTRACEPTION
     Dosage: QD
     Dates: start: 20100401, end: 20100528
  2. CERAZETTE (DESOGESTREL /00754001/) [Suspect]
     Indication: CONTRACEPTION
     Dosage: QD
     Dates: start: 20091101, end: 20100401
  3. CALCIUM CARBONATE [Concomitant]
  4. FOLIC ACID [Concomitant]
  5. OBIMIN-AF [Concomitant]

REACTIONS (3)
  - ANTEPARTUM HAEMORRHAGE [None]
  - DRUG EXPOSURE DURING PREGNANCY [None]
  - PREGNANCY ON ORAL CONTRACEPTIVE [None]
